FAERS Safety Report 4995494-7 (Version None)
Quarter: 2006Q1

REPORT INFORMATION
  Report Type: 
  Country: None (occurrence: None)
  Receive Date: 20060315
  Receipt Date: 20060105
  Transmission Date: 20060701
  Serious: Yes (Other)
  Sender: FDA-Public Use
  Company Number: 431284

PATIENT
  Sex: Female

DRUGS (5)
  1. BONIVA [Suspect]
     Dosage: ORAL
     Route: 048
  2. MOBIC [Concomitant]
  3. PROTONIX [Concomitant]
  4. HYZAAR [Concomitant]
  5. NORVASC [Concomitant]

REACTIONS (2)
  - BACK PAIN [None]
  - BONE PAIN [None]
